FAERS Safety Report 12820467 (Version 1)
Quarter: 2016Q4

REPORT INFORMATION
  Report Type: Spontaneous
  Country: US (occurrence: US)
  Receive Date: 20161006
  Receipt Date: 20161006
  Transmission Date: 20170207
  Serious: No
  Sender: FDA-Public Use
  Company Number: US-INDIVIOR LIMITED-INDV-090051-2016

PATIENT
  Sex: Male

DRUGS (1)
  1. SUBOXONE [Suspect]
     Active Substance: BUPRENORPHINE HYDROCHLORIDE\NALOXONE HYDROCHLORIDE
     Indication: PRODUCT USED FOR UNKNOWN INDICATION
     Dosage: 1/3RD OF THE TABLET, UNK

REACTIONS (6)
  - Fatigue [Unknown]
  - Dysstasia [Unknown]
  - Muscle twitching [Unknown]
  - Euphoric mood [Not Recovered/Not Resolved]
  - Agitation [Unknown]
  - Intentional product use issue [Unknown]
